FAERS Safety Report 11794577 (Version 1)
Quarter: 2015Q4

REPORT INFORMATION
  Report Type: Spontaneous
  Country: US (occurrence: None)
  Receive Date: 20151201
  Receipt Date: 20151201
  Transmission Date: 20160305
  Serious: Yes (Other)
  Sender: FDA-Public Use
  Company Number: US-ALSI-201500305

PATIENT
  Age: 46 Year
  Sex: Female

DRUGS (1)
  1. NITROUS OXIDE. [Suspect]
     Active Substance: NITROUS OXIDE
     Indication: GENERAL ANAESTHESIA
     Dosage: 50 % TOTAL RESPIRATORY
     Route: 055

REACTIONS (6)
  - Vision blurred [None]
  - Subacute combined cord degeneration [None]
  - Dizziness [None]
  - Headache [None]
  - Cognitive disorder [None]
  - Vitamin B12 deficiency [None]
